FAERS Safety Report 4388190-0 (Version None)
Quarter: 2004Q2

REPORT INFORMATION
  Report Type: 
  Country: None (occurrence: None)
  Receive Date: 20040629
  Receipt Date: 20040629
  Transmission Date: 20050107
  Serious: Yes (Hospitalization)
  Sender: FDA-Public Use
  Company Number: None

PATIENT
  Age: 67 Year
  Sex: Female
  Weight: 65 kg

DRUGS (2)
  1. CYTOXAN [Suspect]
     Dosage: 50 MG DAILY ORAL
     Route: 048
     Dates: start: 20031001, end: 20040618
  2. CELEBREX [Suspect]
     Dosage: 400MG BID ORAL
     Route: 048
     Dates: start: 20031001, end: 20040618

REACTIONS (6)
  - ANASTOMOTIC ULCER [None]
  - BACTERIAL INFECTION [None]
  - CHILLS [None]
  - GASTROINTESTINAL HAEMORRHAGE [None]
  - HAEMATOCRIT DECREASED [None]
  - HAEMOGLOBIN DECREASED [None]
